FAERS Safety Report 5093464-4 (Version None)
Quarter: 2006Q3

REPORT INFORMATION
  Report Type: 
  Country: None (occurrence: None)
  Receive Date: 20060828
  Receipt Date: 20060814
  Transmission Date: 20061208
  Serious: Yes (Other)
  Sender: FDA-Public Use
  Company Number: 14545

PATIENT
  Age: 6 Month
  Sex: Female
  Weight: 5.5 kg

DRUGS (11)
  1. ACYCLOVIR [Suspect]
     Indication: ANTIVIRAL PROPHYLAXIS
     Dosage: 250 MG/M2 QD
  2. ACYCLOVIR [Suspect]
     Indication: HERPES SIMPLEX
     Dosage: 250 MG/M2 QD
  3. ACYCLOVIR [Suspect]
     Indication: ANTIVIRAL PROPHYLAXIS
     Dosage: 250 MG/M2 TID
  4. ACYCLOVIR [Suspect]
     Indication: HERPES SIMPLEX
     Dosage: 250 MG/M2 TID
  5. CYCLOSPORINE [Concomitant]
  6. AZATHIOPRINE [Concomitant]
  7. STEROID [Concomitant]
  8. TICARCILLIN-CLAVULANIC ACID [Concomitant]
  9. FLUCONAZOLE [Concomitant]
  10. FENTANYL [Concomitant]
  11. MIDAZOLAM [Concomitant]

REACTIONS (7)
  - AGITATION [None]
  - CHOREOATHETOSIS [None]
  - COMA [None]
  - ENCEPHALOPATHY [None]
  - EYE MOVEMENT DISORDER [None]
  - IMMUNOSUPPRESSANT DRUG LEVEL DECREASED [None]
  - NEUROTOXICITY [None]
